FAERS Safety Report 12431712 (Version 1)
Quarter: 2016Q2

REPORT INFORMATION
  Report Type: Report from Study
  Country: US (occurrence: US)
  Receive Date: 20160603
  Receipt Date: 20160603
  Transmission Date: 20160815
  Serious: Yes (Other)
  Sender: FDA-Public Use
  Company Number: US-AMGEN-USASL2016069215

PATIENT
  Age: 81 Year
  Sex: Female
  Weight: 65.5 kg

DRUGS (4)
  1. FLUVIRIN NOS [Concomitant]
     Active Substance: INFLUENZA VIRUS VACCINE
     Dosage: 0.50 ML, UNK
     Route: 030
     Dates: start: 20150921
  2. PROCRIT [Suspect]
     Active Substance: ERYTHROPOIETIN
     Indication: PRODUCT USED FOR UNKNOWN INDICATION
     Dosage: UNK
     Route: 065
  3. PNEUMOCOCCAL VACCINE POLYVALENT NOS [Concomitant]
     Active Substance: PNEUMOCOCCAL VACCINE POLYVALENT
     Dosage: 0.5 ML, UNK
     Route: 030
     Dates: start: 20140917
  4. XYLOCAINE [Concomitant]
     Active Substance: LIDOCAINE HYDROCHLORIDE
     Dosage: 0.50 ML, UNK
     Route: 023
     Dates: start: 20140917

REACTIONS (24)
  - Hypertension [Unknown]
  - Malnutrition [Unknown]
  - Angina pectoris [Unknown]
  - End stage renal disease [Unknown]
  - Phosphorus metabolism disorder [Unknown]
  - Hypocalcaemia [Unknown]
  - Hyperparathyroidism secondary [Unknown]
  - Headache [Unknown]
  - Pyrexia [Unknown]
  - Bacteraemia [Unknown]
  - Chronic kidney disease [Unknown]
  - Muscle spasms [Unknown]
  - Chills [Unknown]
  - Hypercalcaemia [Unknown]
  - Electrolyte imbalance [Unknown]
  - Hypoglycaemia [Unknown]
  - Diarrhoea [Unknown]
  - Hypersensitivity [Unknown]
  - Iron deficiency anaemia [Unknown]
  - Complication associated with device [Unknown]
  - Renal osteodystrophy [Unknown]
  - Chest pain [Unknown]
  - Nephrogenic anaemia [Unknown]
  - Dysuria [Unknown]

NARRATIVE: CASE EVENT DATE: 20140912
